FAERS Safety Report 21922206 (Version 6)
Quarter: 2023Q2

REPORT INFORMATION
  Report Type: Report from Study
  Country: US (occurrence: US)
  Receive Date: 20230128
  Receipt Date: 20230411
  Transmission Date: 20230721
  Serious: Yes (Hospitalization, Other)
  Sender: FDA-Public Use
  Company Number: US-ABBVIE-4285012

PATIENT
  Age: 75 Year
  Sex: Female
  Weight: 58.059 kg

DRUGS (2)
  1. SKYRIZI [Suspect]
     Active Substance: RISANKIZUMAB-RZAA
     Indication: Psoriasis
     Dosage: FORM STRENGTH: 150 MILLIGRAM
     Route: 058
     Dates: start: 202205
  2. SKYRIZI [Suspect]
     Active Substance: RISANKIZUMAB-RZAA
     Dosage: FORM STRENGTH 150 MG?LAST ADMIN DATE: 2022
     Route: 058
     Dates: start: 20220311

REACTIONS (6)
  - Spinal operation [Recovering/Resolving]
  - Foraminotomy [Unknown]
  - Spinal fusion surgery [Unknown]
  - Meniscus injury [Recovering/Resolving]
  - Knee operation [Recovered/Resolved]
  - COVID-19 [Recovered/Resolved]

NARRATIVE: CASE EVENT DATE: 20220901
